FAERS Safety Report 5487950-2 (Version None)
Quarter: 2007Q4

REPORT INFORMATION
  Report Type: 
  Country: None (occurrence: None)
  Receive Date: 20071012
  Receipt Date: 20071012
  Transmission Date: 20080405
  Serious: No
  Sender: FDA-Public Use
  Company Number: None

PATIENT
  Age: 33 Year
  Sex: Male

DRUGS (1)
  1. TOPIRAMATE [Suspect]
     Indication: BIPOLAR I DISORDER
     Dosage: 25MG BID PO
     Route: 048
     Dates: start: 20070726, end: 20070813

REACTIONS (2)
  - AMMONIA INCREASED [None]
  - CONFUSIONAL STATE [None]
